FAERS Safety Report 6677642-6 (Version None)
Quarter: 2010Q2

REPORT INFORMATION
  Report Type: 
  Country: None (occurrence: None)
  Receive Date: 20100412
  Receipt Date: 20100225
  Transmission Date: 20101027
  Serious: No
  Sender: FDA-Public Use
  Company Number: US-ALEXION-A201000226

PATIENT
  Sex: Male

DRUGS (5)
  1. SOLIRIS [Suspect]
     Indication: PAROXYSMAL NOCTURNAL HAEMOGLOBINURIA
     Dosage: 600 MG, QW X4
     Route: 042
     Dates: start: 20081023, end: 20081101
  2. SOLIRIS [Suspect]
     Dosage: 900 MG, Q2W
     Route: 042
     Dates: start: 20081101
  3. BENADRYL [Suspect]
     Indication: PREMEDICATION
  4. COMPAZINE [Suspect]
     Indication: PREMEDICATION
  5. PEPCID [Suspect]
     Indication: PREMEDICATION

REACTIONS (1)
  - SOMNOLENCE [None]
